FAERS Safety Report 15103939 (Version 1)
Quarter: 2018Q3

REPORT INFORMATION
  Report Type: Spontaneous
  Country: US (occurrence: US)
  Receive Date: 20180703
  Receipt Date: 20180703
  Transmission Date: 20181010
  Serious: Yes (Other)
  Sender: FDA-Public Use
  Company Number: US-NEOS THERAPEUTICS, LP-2018NEO00078

PATIENT
  Age: 60 Year
  Sex: Female

DRUGS (4)
  1. ZIPRASIDONE. [Concomitant]
     Active Substance: ZIPRASIDONE
     Indication: BIPOLAR DISORDER
     Route: 065
  2. AMPHETAMINE [Suspect]
     Active Substance: AMPHETAMINE
     Indication: ATTENTION DEFICIT/HYPERACTIVITY DISORDER
     Dosage: 15 MG, 1X/DAY
     Route: 065
  3. DEXTROAMPHETAMINE. [Suspect]
     Active Substance: DEXTROAMPHETAMINE
     Indication: ATTENTION DEFICIT/HYPERACTIVITY DISORDER
     Route: 065
  4. VALPROATE [Concomitant]
     Active Substance: VALPROIC ACID
     Indication: BIPOLAR DISORDER
     Route: 065

REACTIONS (1)
  - Parkinsonism [Recovered/Resolved]
